FAERS Safety Report 13530495 (Version 2)
Quarter: 2017Q2

REPORT INFORMATION
  Report Type: Report from Study
  Country: US (occurrence: US)
  Receive Date: 20170510
  Receipt Date: 20170511
  Transmission Date: 20170830
  Serious: Yes (Hospitalization)
  Sender: FDA-Public Use
  Company Number: US-BIOGEN-2017BI00397366

PATIENT
  Age: 51 Year
  Sex: Female

DRUGS (1)
  1. TYSABRI [Suspect]
     Active Substance: NATALIZUMAB
     Indication: MULTIPLE SCLEROSIS
     Dosage: INFUSED OVER 1 HOUR
     Route: 042
     Dates: start: 20091109, end: 201612

REACTIONS (13)
  - Diarrhoea [Recovered/Resolved]
  - Atrophy [Unknown]
  - Cow^s milk intolerance [Not Recovered/Not Resolved]
  - Cough [Not Recovered/Not Resolved]
  - Psychotic disorder [Recovered/Resolved]
  - Pain [Recovered/Resolved]
  - Depression [Recovered/Resolved]
  - General symptom [Not Recovered/Not Resolved]
  - Infection parasitic [Recovered/Resolved]
  - Candida infection [Recovered/Resolved]
  - Asthenia [Not Recovered/Not Resolved]
  - Feeling abnormal [Not Recovered/Not Resolved]
  - Respiratory disorder [Not Recovered/Not Resolved]

NARRATIVE: CASE EVENT DATE: 2016
